FAERS Safety Report 18981623 (Version 2)
Quarter: 2021Q1

REPORT INFORMATION
  Report Type: Spontaneous
  Country: US (occurrence: US)
  Receive Date: 20210308
  Receipt Date: 20210324
  Transmission Date: 20210420
  Serious: Yes (Other)
  Sender: FDA-Public Use
  Company Number: US-PFIZER INC-2021237690

PATIENT
  Age: 63 Year
  Sex: Female
  Weight: 55.78 kg

DRUGS (3)
  1. DILANTIN [Suspect]
     Active Substance: PHENYTOIN
     Dosage: 100 MG, 2X/DAY
     Route: 048
  2. DILANTIN [Suspect]
     Active Substance: PHENYTOIN
     Indication: SEIZURE
     Dosage: 60 MG (30 MG 2 CAPSULES), 2X/DAY
     Route: 048
  3. DILANTIN [Suspect]
     Active Substance: PHENYTOIN
     Indication: SEIZURE
     Dosage: 100 MG, 3X/DAY
     Route: 048

REACTIONS (11)
  - Irritability [Unknown]
  - Insomnia [Unknown]
  - Dyskinesia [Unknown]
  - Carotid artery stenosis [Unknown]
  - Balance disorder [Unknown]
  - Head discomfort [Unknown]
  - Head titubation [Unknown]
  - Dizziness [Unknown]
  - Fall [Unknown]
  - White matter lesion [Unknown]
  - Anticonvulsant drug level increased [Unknown]

NARRATIVE: CASE EVENT DATE: 20190415
